FAERS Safety Report 7315634-4 (Version None)
Quarter: 2011Q1

REPORT INFORMATION
  Report Type: 
  Country: None (occurrence: None)
  Receive Date: 20110225
  Receipt Date: 20110211
  Transmission Date: 20110831
  Serious: Yes (Other)
  Sender: FDA-Public Use
  Company Number: PHHY2011US11868

PATIENT
  Age: 34 Year
  Sex: Female

DRUGS (10)
  1. ASPIRIN [Concomitant]
  2. METHYLPREDNISOLONE [Suspect]
     Dosage: 50 MG, UNK
  3. CAFFEINE [Concomitant]
  4. METHYLPREDNISOLONE [Suspect]
     Dosage: 60 MG, UNK
  5. HYDROCODONE BITARTRATE [Concomitant]
  6. METHYLPREDNISOLONE [Suspect]
     Dosage: 80 MG, UNK
  7. METHYLPREDNISOLONE [Suspect]
     Dosage: 50 MG, UNK
  8. METHYLPREDNISOLONE [Suspect]
     Dosage: 40 MG, UNK
  9. ACETAMINOPHEN [Concomitant]
  10. METHYLPREDNISOLONE [Suspect]
     Dosage: 60 MG, UNK

REACTIONS (4)
  - DRUG EXPOSURE DURING PREGNANCY [None]
  - INJECTION SITE PAIN [None]
  - MOTION SICKNESS [None]
  - HEADACHE [None]
